FAERS Safety Report 12528096 (Version 4)
Quarter: 2016Q3

REPORT INFORMATION
  Report Type: Spontaneous
  Country: US (occurrence: US)
  Receive Date: 20160705
  Receipt Date: 20160805
  Transmission Date: 20161109
  Serious: Yes (Hospitalization, Other)
  Sender: FDA-Public Use
  Company Number: US-PFIZER INC-2016329069

PATIENT
  Age: 59 Year
  Sex: Female

DRUGS (2)
  1. XELJANZ XR [Suspect]
     Active Substance: TOFACITINIB CITRATE
     Indication: RHEUMATOID ARTHRITIS
     Dosage: 11 MG, DAILY
  2. PREDNISONE. [Concomitant]
     Active Substance: PREDNISONE
     Dosage: 40 MG, DAILY

REACTIONS (5)
  - Sepsis [Unknown]
  - Wound [Unknown]
  - Cellulitis [Unknown]
  - Visual impairment [Recovering/Resolving]
  - Blood pressure increased [Unknown]

NARRATIVE: CASE EVENT DATE: 201607
